FAERS Safety Report 9064474 (Version 1)
Quarter: 2013Q1

REPORT INFORMATION
  Report Type: Spontaneous
  Country: CN (occurrence: CN)
  Receive Date: 20130128
  Receipt Date: 20130128
  Transmission Date: 20140127
  Serious: Yes (Other)
  Sender: FDA-Public Use
  Company Number: CN-JNJFOC-20130110267

PATIENT
  Age: 3 Decade
  Sex: 0

DRUGS (1)
  1. RISPERDAL [Suspect]
     Indication: SCHIZOPHRENIA
     Dosage: 3-4 MG/DAY WITH IN 7 DAYS
     Route: 048

REACTIONS (12)
  - Hypertonia [Unknown]
  - Endocrine disorder [Unknown]
  - Agitation [Unknown]
  - Insomnia [Unknown]
  - Somnolence [Unknown]
  - Headache [Unknown]
  - Dizziness [Unknown]
  - Akathisia [Unknown]
  - Tremor [Unknown]
  - Vision blurred [Unknown]
  - Tachycardia [Unknown]
  - Weight increased [Unknown]
